FAERS Safety Report 7690225-4 (Version None)
Quarter: 2011Q3

REPORT INFORMATION
  Report Type: 
  Country: None (occurrence: None)
  Receive Date: 20110817
  Receipt Date: 20110817
  Transmission Date: 20111222
  Serious: No
  Sender: FDA-Public Use
  Company Number: None

PATIENT
  Sex: Female

DRUGS (14)
  1. VOTRIENT [Suspect]
     Dosage: 200MG 4T QD PO
     Route: 048
     Dates: start: 20110713
  2. PLAVIX [Concomitant]
  3. ADVAIR DISKUS 100/50 [Concomitant]
  4. CRESTOR [Concomitant]
  5. LEVOTHYROXINE SODIUM [Concomitant]
  6. VIT D [Concomitant]
  7. CELEBREX [Concomitant]
  8. DETROL [Concomitant]
  9. PRILOSEC [Concomitant]
  10. LANTUS [Concomitant]
  11. NOVOLIN R [Concomitant]
  12. FLONASE [Concomitant]
  13. SINGULAIR [Concomitant]
  14. ALTACE [Concomitant]

REACTIONS (1)
  - ALOPECIA [None]
